FAERS Safety Report 10264795 (Version 1)
Quarter: 2014Q2

REPORT INFORMATION
  Report Type: Spontaneous
  Country: IT (occurrence: IT)
  Receive Date: 20140627
  Receipt Date: 20140627
  Transmission Date: 20141212
  Serious: Yes (Hospitalization)
  Sender: FDA-Public Use
  Company Number: PHHY2014IT079197

PATIENT
  Age: 62 Year
  Sex: Female

DRUGS (2)
  1. VOLTAREN [Suspect]
     Indication: ABDOMINAL PAIN
     Dosage: 1 DF, TOTAL
     Route: 030
     Dates: start: 20140622, end: 20140622
  2. BUSCOPAN [Suspect]
     Indication: ABDOMINAL PAIN
     Dosage: 1 DF, TOTAL
     Route: 030
     Dates: start: 20140622, end: 20140622

REACTIONS (3)
  - Loss of consciousness [Recovered/Resolved]
  - Hypotension [Recovered/Resolved]
  - Rash [Recovered/Resolved]
